FAERS Safety Report 19104914 (Version 1)
Quarter: 2021Q2

REPORT INFORMATION
  Report Type: Spontaneous
  Country: CA (occurrence: CA)
  Receive Date: 20210407
  Receipt Date: 20210407
  Transmission Date: 20210717
  Serious: Yes (Hospitalization, Other)
  Sender: FDA-Public Use
  Company Number: NVSC2021CA075560

PATIENT
  Age: 11 Year
  Sex: Male

DRUGS (41)
  1. FLUOXETINE [Suspect]
     Active Substance: FLUOXETINE HYDROCHLORIDE
     Indication: CHILD ABUSE
     Dosage: 20 MG, QD (1 EVERY 1 DAYS)
     Route: 048
  2. HYDROMORPHONE [Suspect]
     Active Substance: HYDROMORPHONE
     Indication: CHILD ABUSE
     Dosage: UNK
     Route: 065
  3. VITAMIN C [Suspect]
     Active Substance: ASCORBIC ACID
     Indication: PRODUCT USED FOR UNKNOWN INDICATION
     Dosage: 1500 MG, QD (1 EVERY 1 DAYS)
     Route: 065
  4. CLONIDINE. [Suspect]
     Active Substance: CLONIDINE
     Indication: CHILD ABUSE
     Dosage: 0.1 MG
     Route: 048
  5. KETOROLAC [Suspect]
     Active Substance: KETOROLAC TROMETHAMINE
     Indication: PAIN
  6. MELATONIN [Suspect]
     Active Substance: MELATONIN
     Indication: SLEEP DEFICIT
  7. DIPHENHYDRAMINE. [Suspect]
     Active Substance: DIPHENHYDRAMINE
     Indication: CHILD ABUSE
  8. CELECOXIB. [Suspect]
     Active Substance: CELECOXIB
     Indication: CHILD ABUSE
     Dosage: 100 MG, BID (2 EVERY 1 DAYS)
     Route: 048
  9. DIMENHYDRINATE. [Suspect]
     Active Substance: DIMENHYDRINATE
     Indication: CHILD ABUSE
     Dosage: 12.5 MG, Q24H (1 EVERY 24 HOURS)
     Route: 048
  10. RANITIDINE. [Suspect]
     Active Substance: RANITIDINE
     Indication: CHILD ABUSE
     Dosage: 150 MG, QD  (1 EVERY 1 DAYS)
     Route: 048
  11. CELECOXIB. [Suspect]
     Active Substance: CELECOXIB
     Indication: PAIN MANAGEMENT
  12. LORAZEPAM. [Suspect]
     Active Substance: LORAZEPAM
     Indication: MUSCLE SPASMS
  13. PHENOBARBITAL. [Suspect]
     Active Substance: PHENOBARBITAL
     Indication: CHILD ABUSE
     Dosage: 30 MG, BID (2 EVERY 1 DAYS)
     Route: 048
  14. CLONIDINE. [Suspect]
     Active Substance: CLONIDINE
     Dosage: 0.05 MG, QD (1 EVERY 1 DAYS)
     Route: 048
  15. LEUPRORELIN [Suspect]
     Active Substance: LEUPROLIDE ACETATE
     Indication: CHILD ABUSE
     Dosage: 7.5 MG (1 EVERY 30 DAYS)
     Route: 030
  16. SALBUTAMOL [Suspect]
     Active Substance: ALBUTEROL
     Indication: CHILD ABUSE
     Dosage: 2 MG, Q4H  (1 EVERY 4 HOURS)
     Route: 055
  17. ARIPIPRAZOLE. [Suspect]
     Active Substance: ARIPIPRAZOLE
     Indication: CHILD ABUSE
     Dosage: 2 MG, TID (3 EVERY 1 DAYS)
     Route: 048
  18. BACLOFEN. [Suspect]
     Active Substance: BACLOFEN
     Indication: CHILD ABUSE
     Dosage: 20 MG, TID  (3 EVERY 1 DAYS)
     Route: 048
  19. CLOBAZAM. [Suspect]
     Active Substance: CLOBAZAM
     Indication: CHILD ABUSE
     Dosage: 20 MG, BID (2 EVERY 1 DAYS)
     Route: 048
  20. FLUTICASONE. [Suspect]
     Active Substance: FLUTICASONE
     Dosage: 250 UG, Q24H (1 EVERY 24 HRS)
     Route: 065
  21. KETOROLAC [Suspect]
     Active Substance: KETOROLAC TROMETHAMINE
     Indication: CHILD ABUSE
     Dosage: 20 MG, Q6H (1 EVERY 6 HOURS)
     Route: 048
  22. VITAMIN D [Suspect]
     Active Substance: VITAMIN D NOS
     Indication: CHILD ABUSE
     Dosage: 2000 IU, QD (1 EVERY 1 DAYS)
     Route: 048
  23. DIPHENHYDRAMINE. [Suspect]
     Active Substance: DIPHENHYDRAMINE
     Indication: PRURITUS
     Dosage: 12.5 MG, Q6H (1 EVERY 6 HOURS)
     Route: 048
  24. HYDROMORPHONE [Suspect]
     Active Substance: HYDROMORPHONE
     Indication: PAIN MANAGEMENT
  25. LORAZEPAM. [Suspect]
     Active Substance: LORAZEPAM
     Indication: SEIZURE
     Dosage: 0.5 MG
     Route: 060
  26. PANTOPRAZOL [Suspect]
     Active Substance: PANTOPRAZOLE SODIUM
     Indication: CHILD ABUSE
     Dosage: 40 MG, QD (1 EVERY 1 DAYS)
     Route: 048
  27. MACROGOL [Suspect]
     Active Substance: POLYETHYLENE GLYCOLS
     Indication: CHILD ABUSE
     Dosage: 30 MG, BID (2 EVERY 1 DAYS)
     Route: 048
  28. ACETAMINOFEN [Suspect]
     Active Substance: ACETAMINOPHEN
     Indication: CHILD ABUSE
     Dosage: UNK, BID (2 EVERY 1 DAYS)
     Route: 065
  29. FLUTICASONE. [Suspect]
     Active Substance: FLUTICASONE
     Indication: CHILD ABUSE
     Dosage: 2 DF, Q24H (1 EVERY 24 HRS)
     Route: 055
  30. HYDROXYCHLOROQUINE [Suspect]
     Active Substance: HYDROXYCHLOROQUINE
     Indication: CHILD ABUSE
     Dosage: 400 MG, QD  (1 EVERY 1 DAYS)
     Route: 048
  31. MELATONIN [Suspect]
     Active Substance: MELATONIN
     Indication: CHILD ABUSE
     Dosage: 10 MG, QD (1 EVERY 1 DAYS)
     Route: 048
  32. METHOCARBAMOL. [Suspect]
     Active Substance: METHOCARBAMOL
     Indication: CHILD ABUSE
     Dosage: UNK, BID (2 EVERY 1 DAYS)
     Route: 048
  33. DIMENHYDRINATE. [Suspect]
     Active Substance: DIMENHYDRINATE
     Indication: CONSTIPATION
     Dosage: 25 MG, Q24H (1 EVERY 24 HOURS)
     Route: 048
  34. LORAZEPAM. [Suspect]
     Active Substance: LORAZEPAM
     Indication: CHILD ABUSE
     Dosage: 2 MG
     Route: 060
  35. LORAZEPAM. [Suspect]
     Active Substance: LORAZEPAM
     Indication: PAIN MANAGEMENT
  36. METHADONE [Suspect]
     Active Substance: METHADONE HYDROCHLORIDE
     Indication: CHILD ABUSE
     Dosage: 2 MG, TID (3 EVERY 1 DAYS)
     Route: 048
  37. MONTELUKAST [Suspect]
     Active Substance: MONTELUKAST SODIUM
     Indication: CHILD ABUSE
     Dosage: 10 MG, QD (1 EVERY 1 DAYS)
     Route: 048
  38. BISACODYL. [Suspect]
     Active Substance: BISACODYL
     Indication: CHILD ABUSE
     Dosage: 5 MG, QD (1 EVERY 1 DAYS)
     Route: 048
  39. GABAPENTIN. [Suspect]
     Active Substance: GABAPENTIN
     Indication: CHILD ABUSE
     Dosage: 600 MG, TID  (3 EVERY 1 DAYS)
     Route: 048
  40. GABAPENTIN. [Suspect]
     Active Substance: GABAPENTIN
     Indication: PAIN MANAGEMENT
  41. FISH OIL [Suspect]
     Active Substance: FISH OIL
     Indication: PRODUCT USED FOR UNKNOWN INDICATION
     Dosage: UNK, Q24H (1 EVERY 24 HOURS)
     Route: 048

REACTIONS (6)
  - Drug ineffective [Recovered/Resolved]
  - Respiratory depression [Recovered/Resolved]
  - Drug abuse [Recovered/Resolved]
  - Drug dependence [Recovered/Resolved]
  - Product prescribing error [Recovered/Resolved]
  - Victim of child abuse [Recovered/Resolved]
